FAERS Safety Report 9682447 (Version 2)
Quarter: 2013Q4

REPORT INFORMATION
  Report Type: Other
  Country: GB (occurrence: GB)
  Receive Date: 20131112
  Receipt Date: 20131112
  Transmission Date: 20140711
  Serious: Yes (Other)
  Sender: FDA-Public Use
  Company Number: GB-LUPIN PHARMACEUTICALS INC.-2013-00573

PATIENT
  Age: 74 Year
  Sex: Male
  Weight: 76.2 kg

DRUGS (3)
  1. SIMVASTATIN TABLETS USP 20 MG [Suspect]
     Indication: PRODUCT USED FOR UNKNOWN INDICATION
     Route: 065
     Dates: start: 2012
  2. CALCEOS [Suspect]
     Indication: BODY HEIGHT DECREASED
     Route: 048
     Dates: start: 2011
  3. FYBOGEL [Concomitant]
     Indication: PRODUCT USED FOR UNKNOWN INDICATION
     Route: 065

REACTIONS (7)
  - Furuncle [Not Recovered/Not Resolved]
  - Carbuncle [Not Recovered/Not Resolved]
  - Localised infection [Not Recovered/Not Resolved]
  - Inflammation [Not Recovered/Not Resolved]
  - Pain in extremity [Unknown]
  - Rash pustular [Unknown]
  - Pain in extremity [Unknown]
